FAERS Safety Report 19588470 (Version 2)
Quarter: 2021Q3

REPORT INFORMATION
  Report Type: Spontaneous
  Country: DE (occurrence: DE)
  Receive Date: 20210721
  Receipt Date: 20210903
  Transmission Date: 20211014
  Serious: Yes (Other)
  Sender: FDA-Public Use
  Company Number: NVSC2021DE158847

PATIENT
  Sex: Female
  Weight: 67 kg

DRUGS (1)
  1. GILENYA [Suspect]
     Active Substance: FINGOLIMOD HYDROCHLORIDE
     Indication: MULTIPLE SCLEROSIS
     Dosage: 0.5 MG, QD
     Route: 048
     Dates: start: 201402

REACTIONS (2)
  - Immunodeficiency [Unknown]
  - SARS-CoV-2 antibody test negative [Unknown]

NARRATIVE: CASE EVENT DATE: 2021
